FAERS Safety Report 16046745 (Version 2)
Quarter: 2019Q2

REPORT INFORMATION
  Report Type: Spontaneous
  Country: US (occurrence: US)
  Receive Date: 20190307
  Receipt Date: 20190423
  Transmission Date: 20190711
  Serious: No
  Sender: FDA-Public Use
  Company Number: US-MYLANLABS-2019M1017495

PATIENT
  Age: 50 Year
  Sex: Female
  Weight: 84 kg

DRUGS (1)
  1. ESTRADIOL VAGINAL CREAM USP [Suspect]
     Active Substance: ESTRADIOL
     Indication: ATROPHIC VULVOVAGINITIS
     Dosage: 2 TUBES
     Route: 067
     Dates: start: 20190206

REACTIONS (2)
  - Product use in unapproved indication [Unknown]
  - Extra dose administered [Unknown]

NARRATIVE: CASE EVENT DATE: 201902
